FAERS Safety Report 7216840-X (Version None)
Quarter: 2011Q1

REPORT INFORMATION
  Report Type: 
  Country: None (occurrence: None)
  Receive Date: 20110110
  Receipt Date: 20110104
  Transmission Date: 20110831
  Serious: No
  Sender: FDA-Public Use
  Company Number: US-BIOGENIDEC-2011BI000557

PATIENT
  Age: 41 Year
  Sex: Female

DRUGS (2)
  1. AVONEX [Suspect]
     Route: 030
     Dates: start: 20070301, end: 20091101
  2. AVONEX [Suspect]
     Indication: MULTIPLE SCLEROSIS
     Route: 030
     Dates: start: 20101205

REACTIONS (8)
  - DRY EYE [None]
  - OPTIC NEURITIS [None]
  - FEELING COLD [None]
  - INFLUENZA LIKE ILLNESS [None]
  - THIRST [None]
  - PHOTOPHOBIA [None]
  - OVERDOSE [None]
  - EYE DISORDER [None]
